FAERS Safety Report 8512446-0 (Version None)
Quarter: 2012Q3

REPORT INFORMATION
  Report Type: 
  Country: None (occurrence: None)
  Receive Date: 20120716
  Receipt Date: 20120705
  Transmission Date: 20120928
  Serious: Yes (Hospitalization)
  Sender: FDA-Public Use
  Company Number: NZ-ROCHE-1076699

PATIENT
  Age: 50 Year
  Sex: Female

DRUGS (12)
  1. BEVACIZUMAB [Suspect]
     Indication: PRODUCT USED FOR UNKNOWN INDICATION
     Route: 065
  2. FOLIC ACID [Concomitant]
  3. ETANERCEPT [Suspect]
     Indication: PSORIATIC ARTHROPATHY
     Route: 058
     Dates: start: 20110504, end: 20110607
  4. PREDNISOLONE [Concomitant]
  5. ACETAMINOPHEN [Concomitant]
  6. PEGFILGRASTIM [Suspect]
     Indication: PRODUCT USED FOR UNKNOWN INDICATION
  7. METHOTREXATE [Suspect]
     Indication: PSORIATIC ARTHROPATHY
     Route: 048
     Dates: start: 20101007, end: 20110607
  8. CILAZAPRIL [Concomitant]
  9. CARBAMAZEPINE [Concomitant]
  10. METFORMIN HYDROCHLORIDE [Concomitant]
  11. DICLOFENAC SODIUM [Concomitant]
  12. GLICLAZIDE [Concomitant]

REACTIONS (3)
  - PNEUMONITIS [None]
  - DIARRHOEA [None]
  - INFECTION [None]
